FAERS Safety Report 24133190 (Version 1)
Quarter: 2024Q3

REPORT INFORMATION
  Report Type: Report from Study
  Country: GB (occurrence: GB)
  Receive Date: 20240724
  Receipt Date: 20240724
  Transmission Date: 20241017
  Serious: Yes (Hospitalization)
  Sender: SANOFI AVENTIS
  Company Number: GB-SA-SAC20231114001034

PATIENT
  Age: 65 Year
  Sex: Male
  Weight: 76.5 kg

DRUGS (21)
  1. ISATUXIMAB [Suspect]
     Active Substance: ISATUXIMAB
     Indication: Plasma cell myeloma refractory
     Dosage: 900 MG, WEEKLY
     Dates: start: 20230413
  2. ISATUXIMAB [Suspect]
     Active Substance: ISATUXIMAB
     Dosage: 900 MG, WEEKLY
     Dates: start: 20230518, end: 20230518
  3. ISATUXIMAB [Suspect]
     Active Substance: ISATUXIMAB
     Dosage: 800 MG, BIW
     Dates: start: 20230615, end: 20230615
  4. ISATUXIMAB [Suspect]
     Active Substance: ISATUXIMAB
     Dosage: 800 MG, BIW
     Dates: start: 20230720, end: 20230720
  5. POMALIDOMIDE [Suspect]
     Active Substance: POMALIDOMIDE
     Indication: Plasma cell myeloma refractory
     Dosage: 3 MG, QD
     Dates: start: 20230413, end: 20231125
  6. POMALIDOMIDE [Suspect]
     Active Substance: POMALIDOMIDE
     Dosage: 1 MG, QD
     Dates: start: 20230518, end: 20231125
  7. POMALIDOMIDE [Suspect]
     Active Substance: POMALIDOMIDE
     Dosage: 2 MG, QD
     Dates: start: 20230615, end: 20230615
  8. POMALIDOMIDE [Suspect]
     Active Substance: POMALIDOMIDE
     Dosage: 3 MG, QD
     Dates: start: 20230720, end: 20230720
  9. DEXAMETHASONE [Suspect]
     Active Substance: DEXAMETHASONE
     Indication: Plasma cell myeloma refractory
     Dosage: 20 MG, QW
     Dates: start: 20230413, end: 20231125
  10. DEXAMETHASONE [Suspect]
     Active Substance: DEXAMETHASONE
     Dosage: 20 MG, BIW
     Dates: start: 20230518, end: 20231125
  11. DEXAMETHASONE [Suspect]
     Active Substance: DEXAMETHASONE
     Dosage: 20 MG, QW
     Dates: start: 20230614, end: 20230614
  12. DEXAMETHASONE [Suspect]
     Active Substance: DEXAMETHASONE
     Dosage: 20 MG, QW
     Dates: start: 20230720, end: 20230720
  13. LOPERAMIDE [Concomitant]
     Active Substance: LOPERAMIDE
     Dosage: 2 MG, 6 TIMES A DAY PRN
     Dates: start: 20230420, end: 20231125
  14. ACYCLOVIR [Concomitant]
     Active Substance: ACYCLOVIR
     Dosage: 200 MG, TID
     Route: 048
     Dates: start: 20230426
  15. OXYCODONE [Concomitant]
     Active Substance: OXYCODONE
     Indication: Urosepsis
     Dosage: 5 MG, PRN
     Route: 048
     Dates: start: 20230426, end: 20231125
  16. CALCIUM CARBONATE\CHOLECALCIFEROL [Concomitant]
     Active Substance: CALCIUM CARBONATE\CHOLECALCIFEROL
     Indication: Vitamin supplementation
     Dosage: UNK
     Dates: start: 20230428
  17. OCTENISAN [ALLANTOIN;OCTENIDINE HYDROCHLORIDE] [Concomitant]
     Indication: Prophylaxis
     Dosage: UNK
     Dates: start: 20230426
  18. POTASSIUM [Concomitant]
     Active Substance: POTASSIUM
     Indication: Blood potassium decreased
     Dosage: UNK
     Dates: start: 20230502
  19. PIPERACILLIN SODIUM\TAZOBACTAM SODIUM [Concomitant]
     Active Substance: PIPERACILLIN SODIUM\TAZOBACTAM SODIUM
     Dosage: UNK UNK, QID(4G/0.5G)
     Route: 042
     Dates: start: 20230426, end: 20230430
  20. SENNA LEAF [Concomitant]
     Active Substance: SENNA LEAF
     Indication: Constipation
     Dosage: 15 MG, PRN
     Route: 048
     Dates: start: 20230428
  21. TALQUETAMAB [Concomitant]
     Active Substance: TALQUETAMAB
     Dosage: UNK
     Dates: start: 20231017

REACTIONS (3)
  - Pyrexia [Recovered/Resolved]
  - Urosepsis [Recovered/Resolved]
  - Acute kidney injury [Recovered/Resolved]

NARRATIVE: CASE EVENT DATE: 20231025
